FAERS Safety Report 5766306-9 (Version None)
Quarter: 2008Q2

REPORT INFORMATION
  Report Type: 
  Country: None (occurrence: None)
  Receive Date: 20080611
  Receipt Date: 20080606
  Transmission Date: 20081010
  Serious: Yes (Hospitalization)
  Sender: FDA-Public Use
  Company Number: NO-MERCK-0806NOR00003

PATIENT
  Age: 65 Year
  Sex: Male

DRUGS (4)
  1. ZOCOR [Suspect]
     Route: 048
     Dates: start: 20070701, end: 20080201
  2. WARFARIN SODIUM [Concomitant]
     Route: 048
     Dates: start: 20070701
  3. METOPROLOL TARTRATE [Concomitant]
     Route: 048
     Dates: start: 20070701
  4. RAMIPRIL [Concomitant]
     Route: 048
     Dates: start: 20071001, end: 20071201

REACTIONS (1)
  - DERMATITIS EXFOLIATIVE [None]
